FAERS Safety Report 4899698-3 (Version None)
Quarter: 2006Q1

REPORT INFORMATION
  Report Type: 
  Country: None (occurrence: None)
  Receive Date: 20060202
  Receipt Date: 20060123
  Transmission Date: 20060701
  Serious: Yes (Hospitalization)
  Sender: FDA-Public Use
  Company Number: CH-MERCK-0601CHE00020

PATIENT
  Age: 49 Year
  Sex: Male

DRUGS (10)
  1. ZOCOR [Suspect]
     Indication: HYPERCHOLESTEROLAEMIA
     Route: 048
     Dates: start: 20051001, end: 20051121
  2. ZETIA [Suspect]
     Indication: HYPERCHOLESTEROLAEMIA
     Route: 048
     Dates: start: 20050825, end: 20051101
  3. CYCLOSPORINE [Suspect]
     Indication: HEART AND LUNG TRANSPLANT
     Route: 048
     Dates: start: 20050801
  4. MYCOPHENOLATE SODIUM [Concomitant]
     Route: 048
     Dates: start: 20050801
  5. METHYLPREDNISOLONE [Concomitant]
     Route: 048
  6. SULFAMETHOXAZOLE AND TRIMETHOPRIM [Concomitant]
     Route: 048
  7. ASPIRIN [Concomitant]
     Route: 048
  8. RAMIPRIL [Concomitant]
     Route: 048
  9. VALACYCLOVIR HYDROCHLORIDE [Concomitant]
     Route: 048
  10. TORSEMIDE [Concomitant]
     Route: 048

REACTIONS (6)
  - BLOOD CREATINE PHOSPHOKINASE INCREASED [None]
  - CONDITION AGGRAVATED [None]
  - DRUG INTERACTION [None]
  - HEPATIC ENZYME INCREASED [None]
  - MYALGIA [None]
  - RHABDOMYOLYSIS [None]
